FAERS Safety Report 25749945 (Version 1)
Quarter: 2025Q3

REPORT INFORMATION
  Report Type: Spontaneous
  Country: CN (occurrence: CN)
  Receive Date: 20250902
  Receipt Date: 20250902
  Transmission Date: 20251021
  Serious: Yes (Other)
  Sender: MYLAN
  Company Number: CN-MYLANLABS-2025M1073782

PATIENT
  Age: 75 Year
  Sex: Male
  Weight: 65.3 kg

DRUGS (5)
  1. LIPITOR [Suspect]
     Active Substance: ATORVASTATIN CALCIUM
     Indication: Lipid management
     Dosage: 40 MILLIGRAM, QD
     Dates: start: 20250812, end: 20250818
  2. DEXBORNEOL\EDARAVONE [Suspect]
     Active Substance: DEXBORNEOL\EDARAVONE
     Indication: Symptomatic treatment
     Dosage: 15 MILLILITER, BID
     Dates: start: 20250811, end: 20250824
  3. PIPERACILLIN AND TAZOBACTAM [Suspect]
     Active Substance: PIPERACILLIN SODIUM\TAZOBACTAM SODIUM
     Indication: Pneumonia
     Dosage: 4.5 GRAM, TID
     Dates: start: 20250811, end: 20250820
  4. AMINO ACIDS\DEXTROSE\ELECTROLYTES NOS\SOYBEAN OIL [Suspect]
     Active Substance: AMINO ACIDS\DEXTROSE\ELECTROLYTES NOS\SOYBEAN OIL
     Indication: Supplementation therapy
     Dosage: 1026 MILLILITER, QD
     Dates: start: 20250816, end: 20250819
  5. SODIUM CHLORIDE [Concomitant]
     Active Substance: SODIUM CHLORIDE
     Indication: Vehicle solution use
     Dosage: 100 MILLILITER, TID
     Dates: start: 20250811, end: 20250820

REACTIONS (2)
  - Transaminases increased [Recovering/Resolving]
  - Product use issue [Unknown]

NARRATIVE: CASE EVENT DATE: 20250812
